FAERS Safety Report 17044934 (Version 2)
Quarter: 2020Q1

REPORT INFORMATION
  Report Type: Spontaneous
  Country: GB (occurrence: GB)
  Receive Date: 20191118
  Receipt Date: 20200301
  Transmission Date: 20200409
  Serious: Yes (Other)
  Sender: FDA-Public Use
  Company Number: NVSC2019GB038846

PATIENT
  Age: 70 Year
  Sex: Male
  Weight: 117.1 kg

DRUGS (2)
  1. ENTRESTO [Suspect]
     Active Substance: SACUBITRIL\VALSARTAN
     Indication: PRODUCT USED FOR UNKNOWN INDICATION
     Dosage: UNK (LOW DOSE)
     Route: 065
     Dates: start: 2019
  2. ENTRESTO [Suspect]
     Active Substance: SACUBITRIL\VALSARTAN
     Dosage: 100 (49/51) MG, BID
     Route: 065

REACTIONS (5)
  - Fatigue [Unknown]
  - N-terminal prohormone brain natriuretic peptide increased [Unknown]
  - Cough [Unknown]
  - Haemoglobin increased [Unknown]
  - Dyspnoea [Recovering/Resolving]

NARRATIVE: CASE EVENT DATE: 20191025
